FAERS Safety Report 8199176-2 (Version None)
Quarter: 2012Q1

REPORT INFORMATION
  Report Type: 
  Country: None (occurrence: None)
  Receive Date: 20120309
  Receipt Date: 20120305
  Transmission Date: 20120608
  Serious: Yes (Other)
  Sender: FDA-Public Use
  Company Number: US-PFIZER INC-2007072088

PATIENT
  Sex: Male
  Weight: 68 kg

DRUGS (4)
  1. PROCARDIA XL [Suspect]
     Dosage: 30 MG, 1X/DAY
     Route: 048
     Dates: start: 19920401
  2. PROCARDIA XL [Suspect]
     Dosage: 30 MG, DAILY
     Route: 048
     Dates: start: 19920401
  3. LUMIGAN [Concomitant]
     Indication: GLAUCOMA
  4. NIFEDIPINE [Suspect]
     Indication: HYPERTENSION
     Dosage: 30 MG, DAILY
     Route: 048
     Dates: start: 20100101, end: 20100101

REACTIONS (5)
  - DIABETES MELLITUS [None]
  - DIZZINESS [None]
  - MEDICATION RESIDUE [None]
  - WEIGHT DECREASED [None]
  - BLOOD PRESSURE DECREASED [None]
